FAERS Safety Report 17519290 (Version 1)
Quarter: 2020Q1

REPORT INFORMATION
  Report Type: Spontaneous
  Country: US (occurrence: US)
  Receive Date: 20200310
  Receipt Date: 20200310
  Transmission Date: 20200409
  Serious: No
  Sender: FDA-Public Use
  Company Number: US-ALLERGAN-1920328US

PATIENT
  Age: 63 Year
  Sex: Female
  Weight: 70.3 kg

DRUGS (4)
  1. ESTRACE [Suspect]
     Active Substance: ESTRADIOL
     Indication: ATROPHIC VULVOVAGINITIS
     Dosage: 0.5 G, BI-WEEKLY
     Route: 067
     Dates: start: 20190306, end: 20190310
  2. FLORAJEN [Concomitant]
     Active Substance: PROBIOTICS NOS
     Indication: PROBIOTIC THERAPY
     Dosage: UNK
  3. UNSPECIFIED CHOLESTEROL MEDICATION [Concomitant]
     Active Substance: UNSPECIFIED INGREDIENT
     Indication: BLOOD CHOLESTEROL
     Dosage: UNK
  4. UNSPECIFIED MEDICATION [Concomitant]
     Active Substance: UNSPECIFIED INGREDIENT

REACTIONS (4)
  - Vulvovaginal inflammation [Unknown]
  - Vulvovaginal erythema [Unknown]
  - Vulvovaginal burning sensation [Unknown]
  - Off label use [Unknown]

NARRATIVE: CASE EVENT DATE: 20190505
